FAERS Safety Report 6184413-6 (Version None)
Quarter: 2009Q2

REPORT INFORMATION
  Report Type: 
  Country: None (occurrence: None)
  Receive Date: 20090508
  Receipt Date: 20090428
  Transmission Date: 20091009
  Serious: Yes (Hospitalization)
  Sender: FDA-Public Use
  Company Number: B0572575A

PATIENT
  Sex: Male
  Weight: 74.9 kg

DRUGS (2)
  1. DUTASTERIDE [Suspect]
     Dosage: .5MG PER DAY
     Route: 048
     Dates: end: 20081214
  2. TAMSULOSIN HCL [Suspect]
     Dosage: .4MG PER DAY
     Route: 048
     Dates: end: 20081214

REACTIONS (1)
  - PHLEBECTOMY [None]
